FAERS Safety Report 9919991 (Version 4)
Quarter: 2014Q2

REPORT INFORMATION
  Report Type: Spontaneous
  Country: GB (occurrence: GB)
  Receive Date: 20140224
  Receipt Date: 20140502
  Transmission Date: 20141212
  Serious: Yes (Hospitalization, Other)
  Sender: FDA-Public Use
  Company Number: GB-ELI_LILLY_AND_COMPANY-GB201402004715

PATIENT
  Age: 60 Year
  Sex: Female
  Weight: 55.4 kg

DRUGS (13)
  1. ALIMTA [Suspect]
     Indication: NON-SMALL CELL LUNG CANCER
     Dosage: 500 MG/M2, EVERY 3 WEEKS
     Route: 065
     Dates: start: 20131203, end: 20131203
  2. ALIMTA [Suspect]
     Dosage: 500 MG/M2, EVERY 3 WEEKS
     Route: 065
     Dates: start: 20131224, end: 20131224
  3. ALIMTA [Suspect]
     Dosage: 500 MG/M2, EVERY 3 WEEKS
     Route: 065
     Dates: start: 20140114, end: 20140114
  4. CISPLATIN [Suspect]
     Indication: NON-SMALL CELL LUNG CANCER
     Dosage: 75 MG/M2, CYCLICAL 3-WEEKY
     Route: 042
     Dates: start: 20131203, end: 20131203
  5. CISPLATIN [Suspect]
     Dosage: 75 MG/M2, CYCLICAL 3-WEEKY
     Route: 042
     Dates: start: 20131224, end: 20131224
  6. CISPLATIN [Suspect]
     Dosage: 75 MG/M2, CYCLICAL 3-WEEKY
     Route: 042
     Dates: start: 20140114, end: 20140114
  7. VITAMIN B12                        /00056201/ [Suspect]
     Indication: NON-SMALL CELL LUNG CANCER
     Dosage: UNK, PRE CYCLE 1
     Route: 030
  8. VITAMIN B12                        /00056201/ [Suspect]
     Dosage: 1000 UG, PRE CYCLE 3
     Route: 030
     Dates: start: 20140114, end: 20140114
  9. APREPITANT [Concomitant]
     Indication: NON-SMALL CELL LUNG CANCER
     Dosage: 125 MG, UNKNOWN
     Route: 065
  10. CYCLIZINE [Concomitant]
     Indication: NON-SMALL CELL LUNG CANCER
     Dosage: 50 MG, UNKNOWN
  11. ONDANSETRON [Concomitant]
     Indication: NON-SMALL CELL LUNG CANCER
     Dosage: 8 MG, UNKNOWN
     Route: 048
  12. DEXAMETHASONE [Concomitant]
     Indication: NON-SMALL CELL LUNG CANCER
     Dosage: 4 MG, BID
  13. FOLINIC ACID [Concomitant]
     Indication: NON-SMALL CELL LUNG CANCER
     Dosage: 400 UG, QD
     Route: 048
     Dates: start: 20131203

REACTIONS (5)
  - Capillary leak syndrome [Recovered/Resolved]
  - Rash [Recovered/Resolved]
  - Vomiting [Recovered/Resolved]
  - Nausea [Recovered/Resolved]
  - Rash [Recovered/Resolved]
